FAERS Safety Report 9997795 (Version 1)
Quarter: 2014Q1

REPORT INFORMATION
  Report Type: Spontaneous
  Country: PH (occurrence: PH)
  Receive Date: 20140311
  Receipt Date: 20140311
  Transmission Date: 20141002
  Serious: Yes (Death)
  Sender: FDA-Public Use
  Company Number: PH-009507513-1403PHL002556

PATIENT
  Age: 60 Year
  Sex: Male

DRUGS (1)
  1. JANUMET [Suspect]
     Dosage: 1 DF, QD
     Route: 048
     Dates: start: 20131220

REACTIONS (3)
  - Diabetic complication [Fatal]
  - Blood glucose decreased [Unknown]
  - Inappropriate schedule of drug administration [Unknown]
